FAERS Safety Report 21584578 (Version 4)
Quarter: 2023Q2

REPORT INFORMATION
  Report Type: Report from Study
  Country: CA (occurrence: CA)
  Receive Date: 20221111
  Receipt Date: 20230417
  Transmission Date: 20230721
  Serious: Yes (Other)
  Sender: FDA-Public Use
  Company Number: CA-JNJFOC-20220418368

PATIENT
  Age: 17 Year
  Sex: Male
  Weight: 30.2 kg

DRUGS (4)
  1. REMICADE [Suspect]
     Active Substance: INFLIXIMAB
     Indication: Crohn^s disease
     Dosage: 300MG WEEK 0,2,6
     Route: 042
     Dates: start: 20220406
  2. REMICADE [Suspect]
     Active Substance: INFLIXIMAB
     Route: 042
     Dates: start: 2022
  3. REMICADE [Suspect]
     Active Substance: INFLIXIMAB
     Dosage: NOTED INCREASE TO 500MG, CHANGE TO Q6W, ALSO TO HAVE A 500MG NOW, THEN 500MG IN 2 WEEKS, THEN TO CON
     Route: 042
     Dates: start: 2022
  4. REMICADE [Suspect]
     Active Substance: INFLIXIMAB
     Dosage: CHANGED TO 400MG WEEK 0,2,6 + THEN MAINTENANCE OF Q6W. RECEIVED ON 17-MAY-2022
     Route: 041
     Dates: start: 2022, end: 20230403

REACTIONS (4)
  - Crohn^s disease [Unknown]
  - Weight increased [Unknown]
  - Off label use [Unknown]
  - Inappropriate schedule of product administration [Unknown]

NARRATIVE: CASE EVENT DATE: 20220101
